FAERS Safety Report 9568741 (Version 2)
Quarter: 2013Q3

REPORT INFORMATION
  Report Type: Spontaneous
  Country: US (occurrence: US)
  Receive Date: 20130930
  Receipt Date: 20130930
  Transmission Date: 20140515
  Serious: No
  Sender: FDA-Public Use
  Company Number: US-AMGEN-USASP2013056283

PATIENT
  Age: 52 Year
  Sex: Female

DRUGS (10)
  1. ENBREL [Suspect]
     Indication: PSORIATIC ARTHROPATHY
     Dosage: 50 MG, QWK
     Route: 058
  2. LIPITOR [Concomitant]
     Dosage: 10 MG, UNK
  3. VIVELLE                            /00045401/ [Concomitant]
     Dosage: 0.1 MG, UNK
  4. FEXOFENADINE [Concomitant]
     Dosage: 180 MG, UNK
  5. IBUPROFEN [Concomitant]
     Dosage: 200 MG, UNK
  6. PROPRANOLOL/HCTZ [Concomitant]
     Dosage: 80/25
  7. FENOFIBRATE [Concomitant]
     Dosage: 130 MG, UNK
  8. MULTI [Concomitant]
     Dosage: UNK
  9. TRIAMTEREEN/HYDROCHLOORTHIAZIDE [Concomitant]
     Dosage: 37.5 TO 25
  10. LEVOTHYROXIN [Concomitant]
     Dosage: 100 MUG, UNK

REACTIONS (5)
  - Pyrexia [Unknown]
  - Asthenia [Not Recovered/Not Resolved]
  - Influenza like illness [Unknown]
  - Therapeutic response decreased [Unknown]
  - Joint effusion [Unknown]
